FAERS Safety Report 8132218-9 (Version None)
Quarter: 2012Q1

REPORT INFORMATION
  Report Type: 
  Country: None (occurrence: None)
  Receive Date: 20120213
  Receipt Date: 20120104
  Transmission Date: 20120608
  Serious: Yes (Death, Other)
  Sender: FDA-Public Use
  Company Number: US-COVIDIEN/TYCO HEALTHCARE/MALLINCKRODT-T201200166

PATIENT
  Age: 41 Year
  Sex: Female

DRUGS (2)
  1. PREGABALIN [Concomitant]
     Indication: FIBROMYALGIA
  2. TRAMADOL HCL [Suspect]
     Indication: FIBROMYALGIA
     Route: 048

REACTIONS (4)
  - COMPLETED SUICIDE [None]
  - TOXICITY TO VARIOUS AGENTS [None]
  - CARDIO-RESPIRATORY ARREST [None]
  - HYPOXIC-ISCHAEMIC ENCEPHALOPATHY [None]
